FAERS Safety Report 5220017-7 (Version None)
Quarter: 2007Q1

REPORT INFORMATION
  Report Type: 
  Country: None (occurrence: None)
  Receive Date: 20070124
  Receipt Date: 20070124
  Transmission Date: 20070707
  Serious: Yes (Other)
  Sender: FDA-Public Use
  Company Number: None

PATIENT
  Age: 64 Year
  Sex: Male
  Weight: 86.2 kg

DRUGS (15)
  1. AGGRENOX [Suspect]
  2. TERAZOSIN HCL [Concomitant]
  3. ASCORBIC ACID [Concomitant]
  4. LISINOPRIL [Concomitant]
  5. ATENOLOL [Concomitant]
  6. HCTZ 25/TRIAMTERENE [Concomitant]
  7. MULTI-VITAMIN [Concomitant]
  8. TRAMADOL HCL [Concomitant]
  9. ASPIRIN [Concomitant]
  10. VERAPAMIL HCL [Concomitant]
  11. CLOPIDOGREL BISULFATE [Concomitant]
  12. POTASSIUM CHLORIDE [Concomitant]
  13. RANITIDINE HCL [Concomitant]
  14. DIPHENHYDRAMINE HCL [Concomitant]
  15. MECLIZINE HCL [Concomitant]

REACTIONS (1)
  - HEADACHE [None]
